FAERS Safety Report 4898309-0 (Version None)
Quarter: 2006Q1

REPORT INFORMATION
  Report Type: 
  Country: None (occurrence: None)
  Receive Date: 20060127
  Receipt Date: 20060120
  Transmission Date: 20060701
  Serious: Yes (Other)
  Sender: FDA-Public Use
  Company Number: 2006010387

PATIENT
  Age: 2 Year
  Sex: Male
  Weight: 13.1543 kg

DRUGS (1)
  1. INFANT'S PEDIACARE DECONGESTENT AND COUGH DROPS (PSEUDOEPHEDRINE, DEXT [Suspect]
     Indication: COUGH
     Dosage: 2 DROPPERS ONCE, ORAL
     Route: 048
     Dates: start: 20060120, end: 20060120

REACTIONS (2)
  - DEPRESSED LEVEL OF CONSCIOUSNESS [None]
  - SOMNOLENCE [None]
